FAERS Safety Report 22747467 (Version 12)
Quarter: 2024Q3

REPORT INFORMATION
  Report Type: Spontaneous
  Country: US (occurrence: US)
  Receive Date: 20230725
  Receipt Date: 20240927
  Transmission Date: 20241017
  Serious: No
  Sender: VERTEX
  Company Number: US-VERTEX PHARMACEUTICALS-2023-010847

PATIENT
  Sex: Female

DRUGS (1)
  1. SYMDEKO [Suspect]
     Active Substance: IVACAFTOR\TEZACAFTOR
     Indication: Cystic fibrosis
     Dosage: UNK
     Route: 048

REACTIONS (10)
  - Alopecia [Recovering/Resolving]
  - Lactose intolerance [Not Recovered/Not Resolved]
  - Tinnitus [Not Recovered/Not Resolved]
  - Food intolerance [Not Recovered/Not Resolved]
  - Sucrose intolerance [Not Recovered/Not Resolved]
  - Pruritus [Recovering/Resolving]
  - Dry skin [Recovering/Resolving]
  - Dairy intolerance [Not Recovered/Not Resolved]
  - Irritable bowel syndrome [Not Recovered/Not Resolved]
  - Insomnia [Not Recovered/Not Resolved]
